FAERS Safety Report 17285487 (Version 1)
Quarter: 2020Q1

REPORT INFORMATION
  Report Type: Spontaneous
  Country: CZ (occurrence: CZ)
  Receive Date: 20200117
  Receipt Date: 20200117
  Transmission Date: 20200409
  Serious: Yes (Other)
  Sender: FDA-Public Use
  Company Number: CZ-FRESENIUS KABI-FK202000423

PATIENT
  Age: 58 Year
  Sex: Male

DRUGS (9)
  1. IRINOTECAN [Concomitant]
     Active Substance: IRINOTECAN
     Indication: RECTAL CANCER METASTATIC
     Route: 065
     Dates: start: 201903
  2. CAPECITABINE. [Concomitant]
     Active Substance: CAPECITABINE
     Indication: RECTAL CANCER METASTATIC
     Route: 065
  3. AFLIBERCEPT [Concomitant]
     Active Substance: AFLIBERCEPT
     Indication: RECTAL CANCER METASTATIC
     Route: 065
     Dates: start: 201903
  4. LEUCOVORIN CALCIUM (MANUFACTURER UNKNOWN) [Suspect]
     Active Substance: LEUCOVORIN CALCIUM
     Dosage: GIVEN UNDER FOLFOX AND FOLFIRI REGIMEN
     Route: 065
     Dates: start: 201903
  5. BEVACIZUMAB. [Suspect]
     Active Substance: BEVACIZUMAB
     Indication: RECTAL CANCER METASTATIC
     Route: 065
     Dates: end: 201809
  6. LEUCOVORIN CALCIUM (MANUFACTURER UNKNOWN) [Suspect]
     Active Substance: LEUCOVORIN CALCIUM
     Indication: RECTAL CANCER METASTATIC
     Dosage: GIVEN UNDER FOLFOX AND FOLFIRI REGIMEN
     Route: 065
     Dates: end: 201503
  7. OXALIPLATIN (MANUFACTURER UNKNOWN) [Suspect]
     Active Substance: OXALIPLATIN
     Indication: RECTAL CANCER METASTATIC
     Route: 065
     Dates: end: 201503
  8. FLUOROURACIL. [Suspect]
     Active Substance: FLUOROURACIL
     Indication: RECTAL CANCER METASTATIC
     Dosage: GIVEN UNDER FOLFOX AND FOLFIRI REGIMEN
     Route: 065
     Dates: end: 201503
  9. FLUOROURACIL. [Suspect]
     Active Substance: FLUOROURACIL
     Dosage: GIVEN UNDER FOLFOX AND FOLFIRI REGIMEN
     Route: 065
     Dates: start: 201903

REACTIONS (4)
  - Renal failure [Unknown]
  - Neuropathy peripheral [Unknown]
  - Thrombocytopenia [Unknown]
  - Haematotoxicity [Unknown]
